FAERS Safety Report 24524142 (Version 5)
Quarter: 2025Q4

REPORT INFORMATION
  Report Type: Spontaneous
  Country: US (occurrence: US)
  Receive Date: 20241018
  Receipt Date: 20251223
  Transmission Date: 20260119
  Serious: Yes (Other)
  Sender: SANOFI AVENTIS
  Company Number: US-SA-2024SA299041

PATIENT
  Age: 58 Year
  Sex: Female

DRUGS (1)
  1. DUPIXENT [Suspect]
     Active Substance: DUPILUMAB
     Indication: Dermatitis atopic
     Dosage: 300 MG, QOW
     Route: 058
     Dates: start: 202405

REACTIONS (11)
  - Deafness [Unknown]
  - Pain [Unknown]
  - Muscle spasms [Unknown]
  - Weight increased [Unknown]
  - Nightmare [Unknown]
  - Sleep talking [Unknown]
  - Diarrhoea [Unknown]
  - Pain in extremity [Unknown]
  - Dry eye [Unknown]
  - Arthralgia [Unknown]
  - Dermatitis atopic [Unknown]

NARRATIVE: CASE EVENT DATE: 20240101
